FAERS Safety Report 13135973 (Version 3)
Quarter: 2017Q1

REPORT INFORMATION
  Report Type: Spontaneous
  Country: KR (occurrence: KR)
  Receive Date: 20170120
  Receipt Date: 20170317
  Transmission Date: 20170428
  Serious: Yes (Hospitalization, Other)
  Sender: FDA-Public Use
  Company Number: KR-009507513-1701KOR008833

PATIENT
  Age: 72 Year
  Sex: Male
  Weight: 57 kg

DRUGS (18)
  1. LASIX [Concomitant]
     Active Substance: FUROSEMIDE
     Indication: PROPHYLAXIS
     Dosage: STRENGTH: 20MG/2ML, DOSE: 20 MG, ONCE
     Route: 042
     Dates: start: 20160824, end: 20160824
  2. STALEVO [Concomitant]
     Active Substance: CARBIDOPA\ENTACAPONE\LEVODOPA
     Dosage: STRENGH: 150/37.5/200 MG, 1 TABLET QD
     Route: 048
     Dates: start: 20160803
  3. MECOBALAMIN PHARMA [Concomitant]
     Indication: PARKINSON^S DISEASE
     Dosage: 1 TABLET, BID
     Route: 048
     Dates: start: 20160803
  4. ALIMTA [Concomitant]
     Active Substance: PEMETREXED DISODIUM
     Indication: LUNG ADENOCARCINOMA
     Dosage: 664 MG, ONCE, CYCLE 2
     Route: 042
     Dates: start: 20160824, end: 20160824
  5. PLETAAL SR [Concomitant]
     Indication: PARKINSON^S DISEASE
     Dosage: 1 CAPSULE, BID
     Route: 048
     Dates: start: 20160803
  6. EMEND (FOSAPREPITANT DIMEGLUMINE) [Suspect]
     Active Substance: FOSAPREPITANT DIMEGLUMINE
     Dosage: 150 MG, ONCE
     Route: 042
     Dates: start: 20161024, end: 20161024
  7. ALOXI [Concomitant]
     Active Substance: PALONOSETRON HYDROCHLORIDE
     Indication: PROPHYLAXIS OF NAUSEA AND VOMITING
     Dosage: 0.25 MG, ONCE
     Route: 042
     Dates: start: 20160824, end: 20160824
  8. BORYUNG ASTRIX [Concomitant]
     Indication: PARKINSON^S DISEASE
     Dosage: 1 CAPSULE, QD
     Route: 048
     Dates: start: 20160803
  9. CISPLATIN. [Concomitant]
     Active Substance: CISPLATIN
     Indication: LUNG ADENOCARCINOMA
     Dosage: 93 MG, ONCE; STRENGHT: 50MG/100ML, CYCLE 2
     Route: 042
     Dates: start: 20160824, end: 20160824
  10. DEXAMETHASONE BUKWANG [Concomitant]
     Dosage: 3.75 MG, BID
     Route: 048
     Dates: start: 20160824, end: 20160826
  11. FOLIC ACID DAEWOO [Concomitant]
     Indication: ANAEMIA PROPHYLAXIS
     Dosage: 1 TABLET, QD
     Route: 048
     Dates: start: 20160725
  12. SKAD [Concomitant]
     Active Substance: AMLODIPINE MALEATE
     Indication: PROPHYLAXIS
     Dosage: 1 TABLET, QD
     Route: 048
     Dates: start: 20160803
  13. DEXAMETHASONE BUKWANG [Concomitant]
     Indication: PROPHYLAXIS OF NAUSEA AND VOMITING
     Dosage: 3.75 MG, BID
     Route: 048
     Dates: start: 20160812, end: 20160815
  14. DEXAMETHASONE DAEWON [Concomitant]
     Indication: PROPHYLAXIS OF NAUSEA AND VOMITING
     Dosage: 10 MG, ONCE
     Route: 042
     Dates: start: 20160824, end: 20160824
  15. SERMION [Concomitant]
     Active Substance: NICERGOLINE
     Indication: PARKINSON^S DISEASE
     Dosage: 1 TABLET, BID
     Route: 048
     Dates: start: 20160803
  16. EMEND (FOSAPREPITANT DIMEGLUMINE) [Suspect]
     Active Substance: FOSAPREPITANT DIMEGLUMINE
     Indication: PROPHYLAXIS OF NAUSEA AND VOMITING
     Dosage: 150 MG, ONCE
     Route: 042
     Dates: start: 20160803, end: 20160803
  17. EMEND (FOSAPREPITANT DIMEGLUMINE) [Suspect]
     Active Substance: FOSAPREPITANT DIMEGLUMINE
     Dosage: 150 MG, ONCE
     Route: 042
     Dates: start: 20160824, end: 20160824
  18. D-MANNITOL DAIHAN [Concomitant]
     Indication: PROPHYLAXIS
     Dosage: STRENGH: 15% 100 ML , DOSE: 100 ML, ONCE
     Route: 042
     Dates: start: 20160824, end: 20160824

REACTIONS (3)
  - Brain injury [Unknown]
  - Seizure [Recovered/Resolved]
  - Cancer pain [Unknown]

NARRATIVE: CASE EVENT DATE: 2016
